FAERS Safety Report 16577453 (Version 2)
Quarter: 2019Q3

REPORT INFORMATION
  Report Type: Spontaneous
  Country: US (occurrence: US)
  Receive Date: 20190716
  Receipt Date: 20190726
  Transmission Date: 20191004
  Serious: Yes (Other)
  Sender: FDA-Public Use
  Company Number: US-NEPHRON STERILE COMPOUNDING CENTER-2070853

PATIENT
  Age: 38 Year
  Sex: Female

DRUGS (11)
  1. PROPOFOL. [Concomitant]
     Active Substance: PROPOFOL
     Route: 041
  2. XYZAL [Concomitant]
     Active Substance: LEVOCETIRIZINE DIHYDROCHLORIDE
     Route: 048
  3. VECURONIUM [Concomitant]
     Active Substance: VECURONIUM BROMIDE
     Route: 041
  4. DECADRON [Concomitant]
     Active Substance: DEXAMETHASONE
     Route: 040
  5. FENTANYL. [Concomitant]
     Active Substance: FENTANYL
     Route: 040
  6. ZOFRAN [Concomitant]
     Active Substance: ONDANSETRON HYDROCHLORIDE
     Route: 040
  7. FLONASE [Concomitant]
     Active Substance: FLUTICASONE PROPIONATE
     Route: 045
  8. SEVOFLURANE. [Concomitant]
     Active Substance: SEVOFLURANE
     Route: 055
  9. GLYCOPYRROLATE. [Concomitant]
     Active Substance: GLYCOPYRROLATE
     Route: 040
  10. NIFEDIPINE. [Concomitant]
     Active Substance: NIFEDIPINE
     Route: 048
  11. NEOSTIGMINE METHYLSULFATE. [Suspect]
     Active Substance: NEOSTIGMINE METHYLSULFATE
     Indication: LAPAROSCOPIC SURGERY
     Route: 040
     Dates: start: 20190709, end: 20190709

REACTIONS (1)
  - Therapeutic product effect increased [Recovered/Resolved]

NARRATIVE: CASE EVENT DATE: 20190709
